FAERS Safety Report 6479803-8 (Version None)
Quarter: 2009Q4

REPORT INFORMATION
  Report Type: 
  Country: None (occurrence: None)
  Receive Date: 20091208
  Receipt Date: 20091127
  Transmission Date: 20100525
  Serious: Yes (Other)
  Sender: FDA-Public Use
  Company Number: ES-ROCHE-671447

PATIENT
  Age: 19 Year
  Sex: Female

DRUGS (1)
  1. ROACUTAN [Suspect]
     Indication: ACNE
     Route: 048
     Dates: start: 20081001, end: 20090601

REACTIONS (3)
  - DIARRHOEA [None]
  - FOOD INTOLERANCE [None]
  - WEIGHT DECREASED [None]
